FAERS Safety Report 5781198-X (Version None)
Quarter: 2008Q2

REPORT INFORMATION
  Report Type: 
  Country: None (occurrence: None)
  Receive Date: 20080618
  Receipt Date: 20080604
  Transmission Date: 20081010
  Serious: Yes (Hospitalization)
  Sender: FDA-Public Use
  Company Number: 235350J08USA

PATIENT
  Age: 45 Year
  Sex: Male
  Weight: 69.4003 kg

DRUGS (3)
  1. REBIF [Suspect]
     Indication: MULTIPLE SCLEROSIS
     Dosage: 44 MCG, 3 IN 1 WEEKS, SUBCUTANEOUS
     Route: 058
     Dates: start: 20080121
  2. VICODIN [Concomitant]
  3. BACLOFEN [Concomitant]

REACTIONS (2)
  - APPENDICITIS PERFORATED [None]
  - CONSTIPATION [None]
